FAERS Safety Report 4622277-X (Version None)
Quarter: 2005Q1

REPORT INFORMATION
  Report Type: 
  Country: None (occurrence: None)
  Receive Date: 20050328
  Receipt Date: 20050318
  Transmission Date: 20050727
  Serious: Yes (Life-Threatening, Hospitalization)
  Sender: FDA-Public Use
  Company Number: 2005-02-1722

PATIENT
  Age: 28 Year
  Sex: Female
  Weight: 50 kg

DRUGS (2)
  1. PEG-INTRON [Suspect]
     Indication: HEPATITIS C
     Dosage: 80 MCG
     Dates: start: 20041101, end: 20050201
  2. REBETOL [Suspect]
     Indication: HEPATITIS C
     Dates: start: 20041101, end: 20050201

REACTIONS (2)
  - DIABETIC COMA [None]
  - WEIGHT DECREASED [None]
